FAERS Safety Report 5108198-7 (Version None)
Quarter: 2006Q3

REPORT INFORMATION
  Report Type: 
  Country: None (occurrence: None)
  Receive Date: 20060919
  Receipt Date: 20060908
  Transmission Date: 20061208
  Serious: Yes (Other)
  Sender: FDA-Public Use
  Company Number: US-BRISTOL-MYERS SQUIBB COMPANY-13502851

PATIENT
  Age: 8 Year
  Sex: Female
  Weight: 31 kg

DRUGS (17)
  1. DASATINIB [Suspect]
     Indication: ACUTE LYMPHOCYTIC LEUKAEMIA
     Dosage: DAY 1, CYCLE 1 DOSE IS QD
     Route: 048
     Dates: start: 20060802, end: 20060818
  2. PIPERACILLIN SODIUM AND TAZOBACTAM SODIUM [Suspect]
  3. AMITRIPTYLINE HCL [Suspect]
  4. CIPROFLOXACIN [Suspect]
  5. DEXAMETHASONE TAB [Concomitant]
  6. DIMENHYDRINATE [Concomitant]
  7. METOCLOPRAMIDE [Concomitant]
  8. PENICILLIN V POTASSIUM [Concomitant]
  9. SEPTRA [Concomitant]
  10. BISACODYL [Concomitant]
  11. HYDROMORPHONE HCL [Concomitant]
  12. IMOVANE [Concomitant]
  13. LORAZEPAM [Concomitant]
  14. DOCUSATE [Concomitant]
  15. GRANISETRON [Concomitant]
  16. GENTAMICIN [Concomitant]
  17. CASPOFUNGIN ACETATE [Concomitant]

REACTIONS (2)
  - HYPOKALAEMIA [None]
  - MALIGNANT NEOPLASM PROGRESSION [None]
